FAERS Safety Report 5429047-3 (Version None)
Quarter: 2007Q3

REPORT INFORMATION
  Report Type: 
  Country: None (occurrence: None)
  Receive Date: 20070829
  Receipt Date: 20070320
  Transmission Date: 20080115
  Serious: No
  Sender: FDA-Public Use
  Company Number: A0641362A

PATIENT
  Age: 38 Year
  Sex: Female

DRUGS (2)
  1. MALARONE [Suspect]
     Indication: MALARIA
     Dosage: 1TAB VARIABLE DOSE
     Route: 048
     Dates: start: 20070203, end: 20070224
  2. PROZAC [Concomitant]

REACTIONS (4)
  - ARTHRALGIA [None]
  - OEDEMA PERIPHERAL [None]
  - PRURITUS [None]
  - URTICARIA [None]
